FAERS Safety Report 5299848-3 (Version None)
Quarter: 2007Q2

REPORT INFORMATION
  Report Type: 
  Country: None (occurrence: None)
  Receive Date: 20070417
  Receipt Date: 20070407
  Transmission Date: 20071010
  Serious: Yes (Other)
  Sender: FDA-Public Use
  Company Number: US-PFIZER INC-2007028454

PATIENT
  Sex: Female

DRUGS (11)
  1. LYRICA [Suspect]
     Indication: NEURALGIA
     Dosage: DAILY DOSE:250MG
  2. TARKA [Concomitant]
  3. DARIFENACIN [Concomitant]
  4. KLOR-CON [Concomitant]
  5. TRIAMTERENE [Concomitant]
  6. LEVOXYL [Concomitant]
  7. MORPHINE SULFATE [Concomitant]
  8. AVANDIA [Concomitant]
  9. ZOLOFT [Concomitant]
  10. NORCO [Concomitant]
  11. PRILOSEC [Concomitant]

REACTIONS (2)
  - HYPOTENSION [None]
  - PNEUMONIA [None]
